FAERS Safety Report 6855004-6 (Version None)
Quarter: 2010Q3

REPORT INFORMATION
  Report Type: 
  Country: None (occurrence: None)
  Receive Date: 20100717
  Receipt Date: 20080424
  Transmission Date: 20110219
  Serious: No
  Sender: FDA-Public Use
  Company Number: US-PFIZER INC-2008001947

PATIENT
  Sex: Female
  Weight: 66.363 kg

DRUGS (5)
  1. CHANTIX [Suspect]
     Indication: SMOKING CESSATION THERAPY
     Route: 048
     Dates: start: 20071227, end: 20080103
  2. ZOLOFT [Concomitant]
  3. ZEBETA [Concomitant]
     Indication: MITRAL VALVE PROLAPSE
  4. ROBAXIN [Concomitant]
  5. HYDROCODONE [Concomitant]

REACTIONS (13)
  - ABDOMINAL PAIN UPPER [None]
  - DECREASED APPETITE [None]
  - DRY MOUTH [None]
  - DYSGEUSIA [None]
  - FATIGUE [None]
  - FEELING ABNORMAL [None]
  - HEADACHE [None]
  - INSOMNIA [None]
  - LETHARGY [None]
  - NAUSEA [None]
  - NIGHTMARE [None]
  - THIRST [None]
  - VOMITING [None]
